FAERS Safety Report 8590179 (Version 2)
Quarter: 2012Q4

REPORT INFORMATION
  Report Type: 
  Country: US (occurrence: US)
  Receive Date: 20120601
  Receipt Date: 20120927
  Transmission Date: 20130627
  Serious: No
  Sender: FDA-Public Use
  Company Number: US-JNJFOC-20120519928

PATIENT
  Age: 41 None
  Sex: Male

DRUGS (9)
  1. STELARA [Suspect]
     Indication: PSORIATIC ARTHROPATHY
     Route: 030
     Dates: start: 20101217
  2. STELARA [Suspect]
     Indication: PSORIASIS
     Route: 030
     Dates: start: 20101217
  3. FLUOXETINE [Concomitant]
     Indication: ANXIETY
     Route: 065
  4. METOPROLOL [Concomitant]
     Indication: HYPERTENSION
     Route: 065
  5. CLOBETASOL PROPIONATE [Concomitant]
     Indication: PSORIASIS
     Dosage: 0.05%
     Route: 065
  6. BENADRYL [Concomitant]
     Indication: PRURITUS
     Dosage: 0.05%
     Route: 065
  7. ASPIRIN [Concomitant]
     Indication: PROPHYLAXIS
     Route: 065
  8. LUXIQ [Concomitant]
     Indication: PSORIASIS
     Dosage: 0.05%; scalp
     Route: 065
  9. T-GEL [Concomitant]
     Route: 065

REACTIONS (2)
  - Presbyopia [Unknown]
  - Incorrect route of drug administration [Unknown]
